FAERS Safety Report 18971670 (Version 2)
Quarter: 2021Q1

REPORT INFORMATION
  Report Type: Spontaneous
  Country: US (occurrence: US)
  Receive Date: 20210305
  Receipt Date: 20210322
  Transmission Date: 20210420
  Serious: Yes (Hospitalization, Disabling)
  Sender: FDA-Public Use
  Company Number: US-BIOGEN-2021BI00984605

PATIENT
  Sex: Female

DRUGS (1)
  1. TECFIDERA [Suspect]
     Active Substance: DIMETHYL FUMARATE
     Indication: MULTIPLE SCLEROSIS
     Route: 065
     Dates: start: 20160819, end: 20200201

REACTIONS (12)
  - Intestinal ulcer [Unknown]
  - Multiple sclerosis [Unknown]
  - Blood count abnormal [Unknown]
  - Blood cholesterol increased [Unknown]
  - Memory impairment [Unknown]
  - Gastric ulcer [Unknown]
  - Hypertension [Unknown]
  - Pain in extremity [Unknown]
  - Gastric cyst [Unknown]
  - Systemic lupus erythematosus [Unknown]
  - Dyspnoea [Unknown]
  - Intervertebral disc protrusion [Unknown]
